FAERS Safety Report 5646279-X (Version None)
Quarter: 2008Q1

REPORT INFORMATION
  Report Type: 
  Country: None (occurrence: None)
  Receive Date: 20080301
  Receipt Date: 20080221
  Transmission Date: 20080703
  Serious: Yes (Other)
  Sender: FDA-Public Use
  Company Number: GB-JNJFOC-20080106865

PATIENT
  Sex: Female
  Weight: 58 kg

DRUGS (7)
  1. REMICADE [Suspect]
     Indication: RHEUMATOID ARTHRITIS
     Route: 042
  2. ENBREL [Suspect]
     Indication: RHEUMATOID ARTHRITIS
     Route: 058
  3. PREDNISOLONE [Suspect]
     Indication: RHEUMATOID ARTHRITIS
     Route: 048
  4. LISINOPRIL [Concomitant]
  5. ZOPICLONE [Concomitant]
  6. FOSAMAX [Concomitant]
  7. CO-DYDRAMOL [Concomitant]

REACTIONS (2)
  - BASAL CELL CARCINOMA [None]
  - ECZEMA [None]
